FAERS Safety Report 7059044-6 (Version None)
Quarter: 2010Q4

REPORT INFORMATION
  Report Type: 
  Country: None (occurrence: None)
  Receive Date: 20101025
  Receipt Date: 20101015
  Transmission Date: 20110411
  Serious: Yes (Hospitalization, Other)
  Sender: FDA-Public Use
  Company Number: US-BIOGENIDEC-2010BI036503

PATIENT
  Age: 72 Year
  Sex: Female

DRUGS (3)
  1. AVONEX [Suspect]
     Indication: MULTIPLE SCLEROSIS
     Route: 030
     Dates: start: 20010801, end: 20030801
  2. AVONEX [Suspect]
     Route: 030
     Dates: start: 20061112
  3. ANTI-SEIZURE MEDICINE [Concomitant]
     Indication: CONVULSION

REACTIONS (2)
  - CONVULSION [None]
  - HYPERTENSION [None]
